FAERS Safety Report 18193646 (Version 1)
Quarter: 2020Q3

REPORT INFORMATION
  Report Type: Spontaneous
  Country: FR (occurrence: FR)
  Receive Date: 20200825
  Receipt Date: 20200825
  Transmission Date: 20201103
  Serious: Yes (Other)
  Sender: FDA-Public Use
  Company Number: FR-PFIZER INC-2020325230

PATIENT
  Age: 59 Year
  Sex: Male
  Weight: 81.9 kg

DRUGS (13)
  1. FUROSEMIDE. [Concomitant]
     Active Substance: FUROSEMIDE
  2. MIMPARA [Concomitant]
     Active Substance: CINACALCET HYDROCHLORIDE
  3. VORICONAZOLE. [Suspect]
     Active Substance: VORICONAZOLE
     Indication: ASPERGILLUS INFECTION
     Dosage: 1000 MG, 1X/DAY
     Route: 048
     Dates: start: 20200427, end: 20200710
  4. CORTANCYL [Concomitant]
     Active Substance: PREDNISONE
  5. ZYMAD [Concomitant]
     Active Substance: CHOLECALCIFEROL
  6. BISOPROLOL HEMIFUMARATE [Concomitant]
     Active Substance: BISOPROLOL FUMARATE
  7. COUMADINE [Concomitant]
     Active Substance: WARFARIN SODIUM
  8. SODIUM BICARBONATE. [Concomitant]
     Active Substance: SODIUM BICARBONATE
  9. ATORVASTATIN CALCIUM. [Interacting]
     Active Substance: ATORVASTATIN CALCIUM
     Indication: DYSLIPIDAEMIA
     Dosage: 10 MG, 1X/DAY
     Route: 048
  10. PANTOPRAZOLE [Concomitant]
     Active Substance: PANTOPRAZOLE
  11. AMLODIPINE [Concomitant]
     Active Substance: AMLODIPINE BESYLATE
  12. KAYEXALATE [Concomitant]
     Active Substance: SODIUM POLYSTYRENE SULFONATE
  13. ENVARSUS XR [Concomitant]
     Active Substance: TACROLIMUS

REACTIONS (2)
  - Muscle spasms [Recovered/Resolved]
  - Drug interaction [Recovered/Resolved]

NARRATIVE: CASE EVENT DATE: 20200427
